FAERS Safety Report 6389330-4 (Version None)
Quarter: 2009Q4

REPORT INFORMATION
  Report Type: 
  Country: None (occurrence: None)
  Receive Date: 20091006
  Receipt Date: 20070904
  Transmission Date: 20100525
  Serious: Yes (Other)
  Sender: FDA-Public Use
  Company Number: US-ASTRAZENECA-2006UW24083

PATIENT
  Age: 22461 Day
  Sex: Male
  Weight: 113.9 kg

DRUGS (11)
  1. SEROQUEL [Suspect]
     Indication: PSYCHOTIC DISORDER
     Dosage: 25MG-300MG
     Route: 048
     Dates: start: 20010807
  2. HALDOL [Concomitant]
  3. RISPERDAL [Concomitant]
     Dosage: 0.25MG-3MG
     Dates: start: 20060412
  4. TRILAFON [Concomitant]
  5. ZYPREXA [Concomitant]
  6. LEXAPRO [Concomitant]
     Route: 048
     Dates: start: 20040318
  7. LITHIUM [Concomitant]
     Indication: BIPOLAR DISORDER
     Dates: start: 19931124
  8. KLONOPIN [Concomitant]
     Indication: ANXIETY
     Dates: start: 20040318
  9. TRAZODONE [Concomitant]
     Indication: SLEEP DISORDER
     Dosage: 50MG-100MG
     Dates: start: 20011218
  10. PROZAC [Concomitant]
     Indication: DEPRESSION
     Dosage: 20MG-40MG
     Dates: start: 19930325
  11. AMBIEN [Concomitant]
     Dosage: 10MG-12.5MG
     Dates: start: 20061128

REACTIONS (5)
  - DIABETES MELLITUS INADEQUATE CONTROL [None]
  - DIABETIC NEUROPATHY [None]
  - HYPERGLYCAEMIA [None]
  - TYPE 1 DIABETES MELLITUS [None]
  - TYPE 2 DIABETES MELLITUS [None]
